FAERS Safety Report 5169547-7 (Version None)
Quarter: 2006Q4

REPORT INFORMATION
  Report Type: 
  Country: None (occurrence: None)
  Receive Date: 20061204
  Receipt Date: 20061129
  Transmission Date: 20070319
  Serious: Yes (Death, Hospitalization, Other)
  Sender: FDA-Public Use
  Company Number: US-2006-035704

PATIENT

DRUGS (9)
  1. CAMPATH [Suspect]
     Indication: CHRONIC LYMPHOCYTIC LEUKAEMIA
     Dosage: 30 MG /DAY, D1-5 EVERY 28 DAYS, SUBCUTANEOUS
     Route: 058
     Dates: start: 20060605, end: 20061027
  2. FLUDARA [Suspect]
     Indication: CHRONIC LYMPHOCYTIC LEUKAEMIA
     Dosage: SEE IMAGE
     Route: 042
     Dates: start: 20060605, end: 20060101
  3. FLUDARA [Suspect]
     Indication: CHRONIC LYMPHOCYTIC LEUKAEMIA
     Dosage: SEE IMAGE
     Route: 042
     Dates: start: 20060101, end: 20061027
  4. NEULASTA [Concomitant]
  5. LEVAQUIN [Concomitant]
  6. TYENOL [Concomitant]
  7. BACTRIM [Concomitant]
  8. FAMVIR [Concomitant]
  9. FLAGYL (METRONIDAZILE BENZOATE) [Concomitant]

REACTIONS (6)
  - DIALYSIS [None]
  - NEUTROPENIA [None]
  - NIGHT SWEATS [None]
  - PYREXIA [None]
  - RENAL FAILURE ACUTE [None]
  - TREMOR [None]
